FAERS Safety Report 8492227-7 (Version None)
Quarter: 2012Q3

REPORT INFORMATION
  Report Type: 
  Country: None (occurrence: None)
  Receive Date: 20120706
  Receipt Date: 20120629
  Transmission Date: 20120928
  Serious: Yes (Hospitalization, Other)
  Sender: FDA-Public Use
  Company Number: US-ROCHE-1083391

PATIENT
  Sex: Female

DRUGS (4)
  1. PEGASYS [Suspect]
     Indication: HEPATITIS C
     Dates: start: 20120430
  2. RIBAVIRIN [Suspect]
     Indication: HEPATITIS C
     Dates: start: 20120430
  3. RIBAVIRIN [Suspect]
  4. TELAPREVIR [Suspect]
     Indication: HEPATITIS C
     Dates: start: 20120430

REACTIONS (4)
  - PNEUMONIA [None]
  - ANAEMIA [None]
  - MALNUTRITION [None]
  - DEHYDRATION [None]
